FAERS Safety Report 12267864 (Version 4)
Quarter: 2017Q1

REPORT INFORMATION
  Report Type: Report from Study
  Country: CO (occurrence: CO)
  Receive Date: 20160414
  Receipt Date: 20170213
  Transmission Date: 20170428
  Serious: Yes (Other)
  Sender: FDA-Public Use
  Company Number: CO-REGENERON PHARMACEUTICALS, INC.-2014-20399

PATIENT

DRUGS (1)
  1. EYLEA [Suspect]
     Active Substance: AFLIBERCEPT
     Indication: NEOVASCULAR AGE-RELATED MACULAR DEGENERATION
     Dosage: TREATMENT OF 10 APPLICATIONS IN THE LEFT EYE
     Route: 031
     Dates: start: 20130222, end: 20140406

REACTIONS (5)
  - Headache [Not Recovered/Not Resolved]
  - Ocular hyperaemia [Unknown]
  - Glaucoma [Unknown]
  - Intraocular pressure increased [Not Recovered/Not Resolved]
  - Eye disorder [Not Recovered/Not Resolved]

NARRATIVE: CASE EVENT DATE: 201402
